FAERS Safety Report 9271869 (Version 2)
Quarter: 2013Q3

REPORT INFORMATION
  Report Type: Spontaneous
  Country: US (occurrence: US)
  Receive Date: 20130506
  Receipt Date: 20130919
  Transmission Date: 20140515
  Serious: Yes (Hospitalization)
  Sender: FDA-Public Use
  Company Number: US-BAYER-2013-053253

PATIENT
  Age: 27 Year
  Sex: Female
  Weight: 66 kg

DRUGS (4)
  1. YASMIN [Suspect]
     Indication: DYSMENORRHOEA
     Dosage: UNK
     Dates: start: 20060525, end: 20060611
  2. PROMETHAZINE [Concomitant]
     Indication: NAUSEA
     Dosage: 25MG EVERY 4-6 HOURS PRN
     Route: 048
     Dates: start: 20060212
  3. PROMETHAZINE [Concomitant]
     Indication: VOMITING
  4. MIGRIN [Concomitant]

REACTIONS (4)
  - Intracranial venous sinus thrombosis [Recovered/Resolved]
  - Injury [Recovered/Resolved]
  - Pain [Recovered/Resolved]
  - Emotional distress [None]
